FAERS Safety Report 4959532-X (Version None)
Quarter: 2006Q1

REPORT INFORMATION
  Report Type: 
  Country: None (occurrence: None)
  Receive Date: 20060331
  Receipt Date: 20031031
  Transmission Date: 20060701
  Serious: Yes (Hospitalization)
  Sender: FDA-Public Use
  Company Number: 2003JP007213

PATIENT
  Age: 18 Year
  Sex: Male
  Weight: 62 kg

DRUGS (1)
  1. CEFAMEZIN [Suspect]
     Indication: CELLULITIS
     Dosage: 1G PER DAY
     Route: 042
     Dates: start: 20031022, end: 20031022

REACTIONS (3)
  - PYREXIA [None]
  - SWELLING FACE [None]
  - URTICARIA [None]
